FAERS Safety Report 19690679 (Version 1)
Quarter: 2021Q3

REPORT INFORMATION
  Report Type: Spontaneous
  Country: US (occurrence: US)
  Receive Date: 20210812
  Receipt Date: 20210812
  Transmission Date: 20211014
  Serious: No
  Sender: FDA-Public Use
  Company Number: US-GLENMARK PHARMACEUTICALS-2020GMK049583

PATIENT

DRUGS (4)
  1. DEPAKOTE [Concomitant]
     Active Substance: DIVALPROEX SODIUM
     Indication: EPILEPSY
     Dosage: UNK
     Route: 065
  2. TEGRETOL [Concomitant]
     Active Substance: CARBAMAZEPINE
     Indication: PRODUCT USED FOR UNKNOWN INDICATION
     Dosage: UNK
     Route: 065
  3. TELMISARTAN TABLETS USP, 40 MG [Suspect]
     Active Substance: TELMISARTAN
     Indication: BLOOD PRESSURE ABNORMAL
     Dosage: 40 MILLIGRAM, OD
     Route: 048
     Dates: start: 2019
  4. MYSOLINE [Concomitant]
     Active Substance: PRIMIDONE
     Indication: PRODUCT USED FOR UNKNOWN INDICATION
     Dosage: UNK
     Route: 065

REACTIONS (1)
  - Dizziness [Unknown]
